FAERS Safety Report 9029580 (Version 1)
Quarter: 2013Q1

REPORT INFORMATION
  Report Type: Spontaneous
  Country: US (occurrence: US)
  Receive Date: 20130125
  Receipt Date: 20130125
  Transmission Date: 20140127
  Serious: No
  Sender: FDA-Public Use
  Company Number: US-009507513-1301USA004880

PATIENT
  Sex: Male
  Weight: 88.44 kg

DRUGS (7)
  1. PEGINTRON [Suspect]
     Dosage: 150 MICROGRAM/0.5 ML, QW
     Route: 058
  2. TELAPREVIR [Suspect]
     Route: 048
  3. REBETOL [Suspect]
     Route: 048
  4. LORAZEPAM [Concomitant]
     Dosage: 2 MG/ML
  5. ALLEGRA-D [Concomitant]
     Dosage: 12 HOUR
     Route: 048
  6. PRILOSEC [Concomitant]
     Route: 048
  7. ENSURE [Concomitant]
     Dosage: UNK

REACTIONS (2)
  - Platelet count decreased [Unknown]
  - Diarrhoea [Unknown]
